FAERS Safety Report 25743223 (Version 2)
Quarter: 2025Q4

REPORT INFORMATION
  Report Type: Spontaneous
  Country: US (occurrence: US)
  Receive Date: 20250830
  Receipt Date: 20251109
  Transmission Date: 20260118
  Serious: No
  Sender: SANOFI AVENTIS
  Company Number: US-SA-2025SA257919

PATIENT
  Sex: Female

DRUGS (1)
  1. DUPIXENT [Suspect]
     Active Substance: DUPILUMAB
     Indication: Dermatitis atopic
     Dosage: 300 MG, QOW
     Route: 058

REACTIONS (6)
  - Fibromyalgia [Unknown]
  - Arthritis [Unknown]
  - Urticaria [Unknown]
  - Arthralgia [Unknown]
  - Dry eye [Unknown]
  - Pruritus [Not Recovered/Not Resolved]
